FAERS Safety Report 4409461-5 (Version None)
Quarter: 2004Q3

REPORT INFORMATION
  Report Type: 
  Country: None (occurrence: None)
  Receive Date: 20040723
  Receipt Date: 20040723
  Transmission Date: 20050211
  Serious: Yes (Hospitalization)
  Sender: FDA-Public Use
  Company Number: XX4-0048PO

PATIENT
  Age: 71 Year
  Sex: Female

DRUGS (10)
  1. PONSTEL [Suspect]
     Dosage: 1. 5MG, QD, PO
     Route: 048
     Dates: start: 20040309
  2. LIPITOR [Suspect]
     Indication: HYPERLIPIDAEMIA
     Dosage: 10 MG, QD, PO
     Route: 048
     Dates: start: 20040309
  3. DILTIAZEM HYDROCHLORIDE [Concomitant]
  4. TRICHLOMETHIAZINE [Concomitant]
  5. VARSARTAN [Concomitant]
  6. ATENOLOL [Concomitant]
  7. SALICYLAMIDE [Concomitant]
  8. CAFFEINE [Concomitant]
  9. PROMETHAZINE HCL [Concomitant]
  10. PARACETAMOL [Concomitant]

REACTIONS (2)
  - FALL [None]
  - RHABDOMYOLYSIS [None]
